FAERS Safety Report 14685108 (Version 4)
Quarter: 2019Q1

REPORT INFORMATION
  Report Type: Spontaneous
  Country: US (occurrence: US)
  Receive Date: 20180327
  Receipt Date: 20190214
  Transmission Date: 20190417
  Serious: Yes (Hospitalization, Other)
  Sender: FDA-Public Use
  Company Number: US-GBPHLPEH-2018-PEL-003384

PATIENT

DRUGS (2)
  1. GABLOFEN [Suspect]
     Active Substance: BACLOFEN
     Indication: MUSCLE SPASTICITY
     Dosage: 180 ?G, QD
     Route: 037
  2. GABLOFEN [Suspect]
     Active Substance: BACLOFEN
     Indication: CEREBRAL PALSY
     Dosage: 363.7 ?G, QD
     Route: 037

REACTIONS (9)
  - Implant site extravasation [Recovered/Resolved]
  - Irritability [Recovered/Resolved]
  - Catheter site mass [Recovered/Resolved]
  - Muscle spasticity [Recovered/Resolved]
  - Muscle twitching [Recovered/Resolved]
  - Device leakage [Recovered/Resolved]
  - Device occlusion [Unknown]
  - Withdrawal syndrome [Recovered/Resolved]
  - Pruritus [Recovered/Resolved]

NARRATIVE: CASE EVENT DATE: 20180129
